FAERS Safety Report 19869133 (Version 2)
Quarter: 2023Q1

REPORT INFORMATION
  Report Type: Spontaneous
  Country: US (occurrence: US)
  Receive Date: 20210922
  Receipt Date: 20230104
  Transmission Date: 20230417
  Serious: No
  Sender: FDA-Public Use
  Company Number: US-PFIZER INC-2021883485

PATIENT
  Age: 68 Year
  Sex: Female

DRUGS (2)
  1. IBRANCE [Suspect]
     Active Substance: PALBOCICLIB
     Indication: Breast cancer metastatic
     Dosage: 100 MG
  2. IBRANCE [Suspect]
     Active Substance: PALBOCICLIB
     Dosage: TAKE 1 CAPSULE (75MG TOTAL) DAILY (WITH BREAKFAST) 2 WEEKS ON AND 2 WEEKS OFF
     Route: 048

REACTIONS (3)
  - Fatigue [Unknown]
  - Off label use [Unknown]
  - Product use issue [Unknown]
